FAERS Safety Report 5813006 (Version 2)
Quarter: 2013Q1

REPORT INFORMATION
  Report Type: Spontaneous
  Country: GB (occurrence: GB)
  Receive Date: 20050607
  Receipt Date: 20130321
  Transmission Date: 20140127
  Serious: Yes (Other)
  Sender: FDA-Public Use
  Company Number: GB-JNJFOC-20050600133

PATIENT
  Age: 55 Year
  Sex: Female

DRUGS (3)
  1. IBUPROFEN [Suspect]
     Indication: PRODUCT USED FOR UNKNOWN INDICATION
     Route: 065
  2. PAROXETINE HYDROCHLORIDE [Suspect]
     Indication: PRODUCT USED FOR UNKNOWN INDICATION
     Dosage: 1 PACK OF 28 TABLETS
     Route: 065
  3. NYTOL [Suspect]
     Indication: PRODUCT USED FOR UNKNOWN INDICATION
     Route: 065

REACTIONS (14)
  - Suicide attempt [Unknown]
  - Mental disorder [Unknown]
  - Aggression [Unknown]
  - Suicidal ideation [Unknown]
  - Anxiety [Unknown]
  - Memory impairment [Unknown]
  - Disturbance in attention [Unknown]
  - Panic attack [Unknown]
  - Self esteem decreased [Unknown]
  - Tearfulness [Unknown]
  - Overdose [Unknown]
  - Depressed mood [Unknown]
  - Depression [Unknown]
  - Insomnia [Unknown]
